FAERS Safety Report 13408145 (Version 1)
Quarter: 2017Q2

REPORT INFORMATION
  Report Type: Spontaneous
  Country: AU (occurrence: AU)
  Receive Date: 20170406
  Receipt Date: 20170406
  Transmission Date: 20170830
  Serious: Yes (Hospitalization, Other)
  Sender: FDA-Public Use
  Company Number: AU-009507513-1703AUS014175

PATIENT
  Age: 39 Year
  Sex: Male

DRUGS (2)
  1. LISINOPRIL. [Suspect]
     Active Substance: LISINOPRIL
     Dosage: 100 MG, UNK
     Route: 048
  2. DESVENLAFAXINE. [Suspect]
     Active Substance: DESVENLAFAXINE
     Dosage: 1400 MG, UNK
     Route: 048

REACTIONS (3)
  - Adverse event [Unknown]
  - Incorrect dose administered [Unknown]
  - Coma scale abnormal [Unknown]
